FAERS Safety Report 9995367 (Version 1)
Quarter: 2014Q1

REPORT INFORMATION
  Report Type: Spontaneous
  Country: US (occurrence: None)
  Receive Date: 20140214
  Receipt Date: 20140214
  Transmission Date: 20141002
  Serious: Yes (Other)
  Sender: FDA-Public Use
  Company Number: US-013597

PATIENT
  Age: 60 Year
  Sex: Male
  Weight: 69.85 kg

DRUGS (1)
  1. PREPOPIK [Suspect]
     Indication: BOWEL PREPARATION
     Dosage: FIRST PACKET TAKEN AT 1 PM ON 07 NOVEMBER 2013
     Dates: start: 20071107

REACTIONS (3)
  - Dizziness [None]
  - Nausea [None]
  - Treatment noncompliance [None]
